FAERS Safety Report 10215439 (Version 1)
Quarter: 2014Q2

REPORT INFORMATION
  Report Type: Spontaneous
  Country: US (occurrence: US)
  Receive Date: 20140604
  Receipt Date: 20140604
  Transmission Date: 20141212
  Serious: Yes (Other)
  Sender: FDA-Public Use
  Company Number: US-BEH-2014042857

PATIENT
  Age: 57 Year
  Sex: Female
  Weight: 119 kg

DRUGS (28)
  1. HIZENTRA [Suspect]
     Indication: IMMUNODEFICIENCY COMMON VARIABLE
     Route: 058
  2. ACETAMINOPHEN [Concomitant]
  3. DIPHENHYDRAMINE [Concomitant]
  4. LIDOCAINE/PRILOCAINE [Concomitant]
  5. EPI-PEN [Concomitant]
  6. VOLTAREN [Concomitant]
  7. CEFDINIR [Concomitant]
  8. GABAPENTIN [Concomitant]
  9. BUDESONIDE [Concomitant]
  10. PROMETHAZINE [Concomitant]
  11. HYDROCHLOROTHIAZIDE [Concomitant]
  12. VERAPAMIL [Concomitant]
  13. FLONASE [Concomitant]
  14. RELION VENTOLIN [Concomitant]
  15. SULFAMETHOXAZOLE [Concomitant]
  16. SYMBICORT [Concomitant]
  17. AYR [Concomitant]
  18. ALPRAZOLAM [Concomitant]
  19. LEVOTHYROXINE [Concomitant]
  20. ALBUTEROL [Concomitant]
  21. LEVOTHYROXINE [Concomitant]
  22. ALBUTEROL [Concomitant]
  23. DOXYCYCLINE [Concomitant]
  24. BUTALBITAL ACETAMINOPHEN CAFFEINE [Concomitant]
  25. FLEXERIL [Concomitant]
  26. PROZAC [Concomitant]
  27. ISOMETHEPTINE CAFFEINE ACETAMINOPHEN [Concomitant]
  28. VITAMINS [Concomitant]

REACTIONS (2)
  - Cellulitis [Unknown]
  - Panic attack [Unknown]
